FAERS Safety Report 4953730-7 (Version None)
Quarter: 2006Q1

REPORT INFORMATION
  Report Type: 
  Country: None (occurrence: None)
  Receive Date: 20060327
  Receipt Date: 20010227
  Transmission Date: 20060701
  Serious: Yes (Disabling, Other)
  Sender: FDA-Public Use
  Company Number: PHEH2001US01937

PATIENT
  Age: 67 Year
  Sex: Male
  Weight: 118.82 kg

DRUGS (15)
  1. LAMISIL [Suspect]
     Indication: NAIL TINEA
     Dosage: 250 MG, QD
     Route: 048
     Dates: start: 20000707, end: 20000808
  2. GLUCOTROL [Concomitant]
  3. GLUCOPHAGE [Concomitant]
  4. GLYSET [Concomitant]
  5. AVANDIA [Concomitant]
  6. PROSCAR [Concomitant]
  7. FUROSEMIDE [Concomitant]
  8. GLIPIZIDE [Concomitant]
     Dosage: UNK, UNK
  9. PAXIL [Suspect]
     Indication: ANXIETY DISORDER
     Route: 048
  10. METOPROLOL [Concomitant]
  11. HYDROXYZINE [Concomitant]
  12. FLOMAX [Concomitant]
  13. BENICAR [Concomitant]
  14. MAGNESIUM OXIDE [Concomitant]
  15. ZOCOR [Suspect]

REACTIONS (19)
  - AGEUSIA [None]
  - ANOSMIA [None]
  - ANXIETY DISORDER [None]
  - ASTHENIA [None]
  - BIOPSY SKIN [None]
  - DIFFICULTY IN WALKING [None]
  - DRY SKIN [None]
  - GAIT DISTURBANCE [None]
  - GROIN PAIN [None]
  - HEADACHE [None]
  - HYPERSENSITIVITY [None]
  - HYPOAESTHESIA ORAL [None]
  - MEMORY IMPAIRMENT [None]
  - NERVE CONDUCTION STUDIES ABNORMAL [None]
  - POLYNEUROPATHY [None]
  - PRURITUS [None]
  - RASH ERYTHEMATOUS [None]
  - TREMOR [None]
  - WEIGHT DECREASED [None]
